FAERS Safety Report 6415080-1 (Version None)
Quarter: 2009Q4

REPORT INFORMATION
  Report Type: 
  Country: None (occurrence: None)
  Receive Date: 20091021
  Receipt Date: 20091006
  Transmission Date: 20100525
  Serious: Yes (Hospitalization, Other)
  Sender: FDA-Public Use
  Company Number: 2009AP004112

PATIENT
  Age: 45 Year
  Sex: Female

DRUGS (1)
  1. RISPERIDONE [Suspect]

REACTIONS (11)
  - DISORIENTATION [None]
  - DYSURIA [None]
  - EXTRAPYRAMIDAL DISORDER [None]
  - FEAR OF EATING [None]
  - INTESTINAL FUNCTIONAL DISORDER [None]
  - NEGATIVISM [None]
  - NEUROLEPTIC MALIGNANT SYNDROME [None]
  - PANCREATITIS ACUTE [None]
  - PHOBIA [None]
  - RHABDOMYOLYSIS [None]
  - SPEECH DISORDER [None]
